FAERS Safety Report 18951490 (Version 2)
Quarter: 2021Q1

REPORT INFORMATION
  Report Type: Spontaneous
  Country: FR (occurrence: FR)
  Receive Date: 20210301
  Receipt Date: 20210304
  Transmission Date: 20210420
  Serious: Yes (Hospitalization, Other)
  Sender: FDA-Public Use
  Company Number: FR-JNJFOC-20210300345

PATIENT
  Age: 13 Year

DRUGS (1)
  1. TRAMADOL HYDROCHLORIDE. [Suspect]
     Active Substance: TRAMADOL HYDROCHLORIDE
     Indication: PRODUCT USED FOR UNKNOWN INDICATION
     Dosage: 200 MILLIGRAM, 1/DAY
     Route: 048
     Dates: start: 2015

REACTIONS (2)
  - Drug abuse [Not Recovered/Not Resolved]
  - Drug dependence [Recovering/Resolving]

NARRATIVE: CASE EVENT DATE: 2015
